FAERS Safety Report 7250264-4 (Version None)
Quarter: 2011Q1

REPORT INFORMATION
  Report Type: 
  Country: None (occurrence: None)
  Receive Date: 20110128
  Receipt Date: 20110121
  Transmission Date: 20110831
  Serious: Yes (Hospitalization, Disabling)
  Sender: FDA-Public Use
  Company Number: DE-ALLERGAN-1012976US

PATIENT
  Age: 60 Year
  Sex: Female
  Weight: 100 kg

DRUGS (11)
  1. OZURDEX [Suspect]
     Indication: MACULAR OEDEMA
     Dosage: UNK
     Route: 031
     Dates: start: 20100928, end: 20100928
  2. FALITHROM [Suspect]
     Indication: PRODUCT USED FOR UNKNOWN INDICATION
     Route: 048
  3. DIGITOXIN [Concomitant]
     Dosage: 1/2 TB. ORAL QD
     Route: 048
  4. DIOVAN [Concomitant]
     Dosage: 1 TB. ORAL QD
     Route: 048
  5. DIAMOX                             /00016901/ [Concomitant]
     Route: 042
  6. PREDNISOLONE [Concomitant]
     Route: 042
  7. BELOC ZOK [Concomitant]
     Dosage: 1/2 TB. ORAL QD
     Route: 048
  8. SIMVAGAMMA [Concomitant]
     Dosage: 20 MG, QD
     Route: 048
  9. NOVALGIN                           /00039501/ [Concomitant]
     Route: 048
  10. TORASEMID [Concomitant]
     Dosage: 1 TB. ORAL QD
     Route: 048
  11. ACETAMINOPHEN [Concomitant]
     Route: 048

REACTIONS (2)
  - ENDOPHTHALMITIS [None]
  - CEREBRAL HAEMORRHAGE [None]
